FAERS Safety Report 6181208-4 (Version None)
Quarter: 2009Q2

REPORT INFORMATION
  Report Type: 
  Country: None (occurrence: None)
  Receive Date: 20090501
  Receipt Date: 20090305
  Transmission Date: 20091009
  Serious: No
  Sender: FDA-Public Use
  Company Number: 2009001499

PATIENT
  Age: 73 Year
  Sex: Male
  Weight: 73.4827 kg

DRUGS (10)
  1. TREANDA [Suspect]
     Indication: CHRONIC LYMPHOCYTIC LEUKAEMIA
     Dosage: (100 MG/M2, DAY 1 + 2 EVERY 28 DAY CYCLE) , INTRAVENOUS
     Route: 042
     Dates: start: 20090201
  2. ADVAIR DISKUS 100/50 [Concomitant]
  3. ASPIRIN [Concomitant]
  4. NPH INSULIN [Concomitant]
  5. REGULAR INSULIN (INSULIN BOVINE) [Concomitant]
  6. LISINOPRIL [Concomitant]
  7. LOVASTATIN [Concomitant]
  8. OMEPRAZOLE [Concomitant]
  9. COMPAZINE [Concomitant]
  10. SIMVASTATIN [Concomitant]

REACTIONS (3)
  - RASH ERYTHEMATOUS [None]
  - RASH PAPULAR [None]
  - RASH PRURITIC [None]
